FAERS Safety Report 5281915-1 (Version None)
Quarter: 2007Q1

REPORT INFORMATION
  Report Type: 
  Country: None (occurrence: None)
  Receive Date: 20070330
  Receipt Date: 20070323
  Transmission Date: 20070707
  Serious: Yes (Hospitalization)
  Sender: FDA-Public Use
  Company Number: US-JNJFOC-20070305881

PATIENT
  Sex: Male
  Weight: 106.6 kg

DRUGS (6)
  1. FENTANYL TRANSDERMAL SYSTEM [Suspect]
     Indication: BACK PAIN
     Route: 062
  2. CELEBREX [Suspect]
     Indication: DRUG USE FOR UNKNOWN INDICATION
     Route: 048
  3. ADVIL [Suspect]
     Indication: PAIN
     Route: 048
  4. EFFEXOR XR [Concomitant]
     Indication: DEPRESSION
     Route: 048
  5. ALTACE [Concomitant]
     Indication: HYPERTENSION
     Route: 048
  6. METOPROLOL SUCCINATE [Concomitant]
     Indication: HYPERTENSION
     Route: 048

REACTIONS (9)
  - BLOOD PRESSURE DECREASED [None]
  - DYSURIA [None]
  - HEART RATE INCREASED [None]
  - HYPERHIDROSIS [None]
  - LOSS OF CONSCIOUSNESS [None]
  - MALAISE [None]
  - OXYGEN SATURATION DECREASED [None]
  - RENAL FAILURE [None]
  - URINE ANALYSIS ABNORMAL [None]
